FAERS Safety Report 7643540-4 (Version None)
Quarter: 2011Q3

REPORT INFORMATION
  Report Type: 
  Country: None (occurrence: None)
  Receive Date: 20110729
  Receipt Date: 20110725
  Transmission Date: 20111222
  Serious: Yes (Death)
  Sender: FDA-Public Use
  Company Number: CN-JNJFOC-20110710919

PATIENT
  Sex: Male

DRUGS (15)
  1. DOXORUBICIN HCL [Suspect]
     Route: 042
  2. BORTEZOMIB [Suspect]
     Dosage: 1 TREATMENT CYCLE OF BORTEZOMIB INCLUDED AN INTRAVENOUS BOLUS (1.3 MG/M2) ON DAYS 1,4,8 AND 11.
     Route: 040
  3. BORTEZOMIB [Suspect]
     Indication: MULTIPLE MYELOMA
     Route: 040
  4. DEXAMETHASONE [Suspect]
     Route: 065
  5. DEXAMETHASONE [Suspect]
     Route: 065
  6. DOXORUBICIN HCL [Suspect]
     Route: 042
  7. BORTEZOMIB [Suspect]
     Route: 040
  8. BORTEZOMIB [Suspect]
     Route: 040
  9. DEXAMETHASONE [Suspect]
     Indication: MULTIPLE MYELOMA
     Dosage: 1 TREATMENT CYCLE OF DEXAMETHASONE INCLUDED 40 MG ON DAYS 1 - 4.
     Route: 065
  10. BORTEZOMIB [Suspect]
     Route: 040
  11. DEXAMETHASONE [Suspect]
     Route: 065
  12. DOXORUBICIN HCL [Suspect]
     Indication: MULTIPLE MYELOMA
     Dosage: 1 TREATMENT CYCLE OF DOXORUBICIN INCLUDED 10 MG PER DAY ON DAYS 1 TO 4
     Route: 042
  13. DOXORUBICIN HCL [Suspect]
     Route: 042
  14. DOXORUBICIN HCL [Suspect]
     Route: 042
  15. DEXAMETHASONE [Suspect]
     Route: 065

REACTIONS (1)
  - RESPIRATORY FAILURE [None]
